FAERS Safety Report 18348274 (Version 1)
Quarter: 2020Q4

REPORT INFORMATION
  Report Type: Report from Study
  Country: US (occurrence: US)
  Receive Date: 20201006
  Receipt Date: 20201006
  Transmission Date: 20210114
  Serious: Yes (Other)
  Sender: FDA-Public Use
  Company Number: US-ACCORD-203897

PATIENT

DRUGS (3)
  1. PREDNISONE. [Suspect]
     Active Substance: PREDNISONE
     Indication: IMMUNOSUPPRESSION
  2. MYCOPHENOLIC ACID. [Suspect]
     Active Substance: MYCOPHENOLIC ACID
     Indication: IMMUNOSUPPRESSION
  3. TACROLIMUS. [Suspect]
     Active Substance: TACROLIMUS
     Indication: IMMUNOSUPPRESSION

REACTIONS (1)
  - COVID-19 [Unknown]
